FAERS Safety Report 4358108-5 (Version None)
Quarter: 2004Q2

REPORT INFORMATION
  Report Type: 
  Country: None (occurrence: None)
  Receive Date: 20040511
  Receipt Date: 20040427
  Transmission Date: 20050107
  Serious: Yes (Death, Hospitalization)
  Sender: FDA-Public Use
  Company Number: DE-JNJFOC-20040301472

PATIENT
  Age: 46 Year
  Sex: Male

DRUGS (9)
  1. HALDOL [Suspect]
     Indication: DRUG USE FOR UNKNOWN INDICATION
     Dosage: SEE IMAGE
     Route: 048
     Dates: start: 20040131, end: 20040205
  2. HALDOL [Suspect]
     Indication: DRUG USE FOR UNKNOWN INDICATION
     Dosage: SEE IMAGE
     Route: 048
     Dates: start: 20040206, end: 20040208
  3. HALDOL [Suspect]
     Indication: DRUG USE FOR UNKNOWN INDICATION
     Dosage: ORAL
     Route: 048
     Dates: start: 20040129
  4. ENOXAPARIN SODIUM [Concomitant]
  5. ROCEPHIN [Concomitant]
  6. CIPROBAY (CIPROFLOXACIN HYDROCHLORIDE) [Concomitant]
  7. LASIX [Concomitant]
  8. FAUSTAN (DIAZEPAM) [Concomitant]
  9. VALPROATE SODIUM [Concomitant]

REACTIONS (21)
  - BIOPSY BONE MARROW ABNORMAL [None]
  - BONE DISORDER [None]
  - CARDIAC DISORDER [None]
  - DEMENTIA ALZHEIMER'S TYPE [None]
  - DISEASE PROGRESSION [None]
  - DISEASE RECURRENCE [None]
  - HAEMATOCRIT DECREASED [None]
  - HAEMORRHAGE [None]
  - HEPATIC CONGESTION [None]
  - HYPERAEMIA [None]
  - OSTEOPOROSIS [None]
  - PANCREATIC DISORDER [None]
  - PLATELET COUNT DECREASED [None]
  - PULMONARY ARTERY THROMBOSIS [None]
  - PULMONARY CONGESTION [None]
  - PULMONARY EMBOLISM [None]
  - PULMONARY HAEMORRHAGE [None]
  - PULMONARY NECROSIS [None]
  - PULMONARY OEDEMA [None]
  - RENAL DISORDER [None]
  - SPLEEN DISORDER [None]
